FAERS Safety Report 6889677-9 (Version None)
Quarter: 2010Q3

REPORT INFORMATION
  Report Type: 
  Country: None (occurrence: None)
  Receive Date: 20100730
  Receipt Date: 20080415
  Transmission Date: 20110219
  Serious: No
  Sender: FDA-Public Use
  Company Number: US-PFIZER INC-2007100541

PATIENT
  Sex: Male
  Weight: 131.54 kg

DRUGS (2)
  1. LIPITOR [Suspect]
     Indication: LIPIDS INCREASED
     Route: 048
     Dates: start: 20000501
  2. LIPITOR [Suspect]
     Indication: HYPERLIPIDAEMIA

REACTIONS (1)
  - PAIN [None]
